FAERS Safety Report 6231256-0 (Version None)
Quarter: 2009Q2

REPORT INFORMATION
  Report Type: 
  Country: None (occurrence: None)
  Receive Date: 20090616
  Receipt Date: 20090609
  Transmission Date: 20091009
  Serious: Yes (Other)
  Sender: FDA-Public Use
  Company Number: US-ELI_LILLY_AND_COMPANY-US200906002976

PATIENT
  Sex: Female

DRUGS (7)
  1. FORTEO [Suspect]
     Indication: OSTEOPOROSIS
     Dosage: 20 UG, DAILY (1/D)
     Dates: start: 20050101, end: 20070101
  2. FORTEO [Suspect]
     Dosage: 20 UG, DAILY (1/D)
     Dates: start: 20090507
  3. BONIVA [Concomitant]
  4. FLONASE [Concomitant]
     Indication: SINUS DISORDER
  5. ADVAIR HFA [Concomitant]
     Indication: ASTHMA
  6. FISH OIL [Concomitant]
  7. NEXIUM [Concomitant]
     Indication: GASTROOESOPHAGEAL REFLUX DISEASE

REACTIONS (4)
  - BONE DISORDER [None]
  - FEMUR FRACTURE [None]
  - INTENTIONAL DRUG MISUSE [None]
  - MEDICATION ERROR [None]
